FAERS Safety Report 7603416-5 (Version None)
Quarter: 2011Q3

REPORT INFORMATION
  Report Type: 
  Country: None (occurrence: None)
  Receive Date: 20110712
  Receipt Date: 20110712
  Transmission Date: 20111222
  Serious: Yes (Hospitalization, Other)
  Sender: FDA-Public Use
  Company Number: PHHO2008CA13103

PATIENT
  Sex: Female
  Weight: 51.7 kg

DRUGS (7)
  1. EXELON [Suspect]
     Indication: DEMENTIA ALZHEIMER'S TYPE
     Dosage: 5CM2
     Route: 062
     Dates: start: 20080220, end: 20080318
  2. EXELON [Suspect]
     Dosage: 10CM2
     Route: 062
     Dates: start: 20080320
  3. LIPITOR [Concomitant]
     Indication: DYSLIPIDAEMIA
  4. NO TREATMENT RECEIVED [Suspect]
     Indication: DEMENTIA ALZHEIMER'S TYPE
     Dosage: NO TREATMENT
  5. CALCIUM CARBONATE [Concomitant]
     Indication: PROPHYLAXIS
  6. VITAMIN D [Concomitant]
     Indication: PROPHYLAXIS
  7. ASPIRIN [Concomitant]
     Indication: PROPHYLAXIS

REACTIONS (7)
  - PALLOR [None]
  - HEART RATE DECREASED [None]
  - BRADYCARDIA [None]
  - CARDIAC PACEMAKER INSERTION [None]
  - VOMITING [None]
  - SICK SINUS SYNDROME [None]
  - SYNCOPE [None]
